FAERS Safety Report 6966189-5 (Version None)
Quarter: 2010Q3

REPORT INFORMATION
  Report Type: 
  Country: None (occurrence: None)
  Receive Date: 20100903
  Receipt Date: 20100831
  Transmission Date: 20110219
  Serious: Yes (Hospitalization, Other)
  Sender: FDA-Public Use
  Company Number: US-ALLERGAN-1011309US

PATIENT
  Age: 60 Year
  Sex: Female

DRUGS (3)
  1. BOTOX [Suspect]
     Indication: BLEPHAROSPASM
     Dosage: UNK
     Dates: start: 20061207, end: 20061207
  2. BOTOX [Suspect]
     Dosage: UNK
     Dates: start: 20070104, end: 20070104
  3. BOTOX [Suspect]
     Dosage: 50 UNITS, SINGLE
     Dates: start: 20080902, end: 20080902

REACTIONS (12)
  - ASTHENIA [None]
  - CONFUSIONAL STATE [None]
  - DRUG INEFFECTIVE [None]
  - ENCEPHALITIS [None]
  - FATIGUE [None]
  - GAIT DISTURBANCE [None]
  - INCONTINENCE [None]
  - NAUSEA [None]
  - PYREXIA [None]
  - SOMNOLENCE [None]
  - SPEECH DISORDER [None]
  - VOMITING [None]
